FAERS Safety Report 8330324-7 (Version None)
Quarter: 2012Q2

REPORT INFORMATION
  Report Type: 
  Country: None (occurrence: None)
  Receive Date: 20120502
  Receipt Date: 20120423
  Transmission Date: 20120825
  Serious: Yes (Other)
  Sender: FDA-Public Use
  Company Number: US-ACTELION-A-US2011-58562

PATIENT

DRUGS (3)
  1. TRACLEER [Suspect]
     Indication: PULMONARY ARTERIAL HYPERTENSION
     Dosage: UNK
     Route: 048
     Dates: start: 20020214
  2. COUMADIN [Concomitant]
  3. VIAGRA [Concomitant]

REACTIONS (7)
  - ANXIETY [None]
  - MOTOR DYSFUNCTION [None]
  - DYSGRAPHIA [None]
  - TREMOR [None]
  - PAIN [None]
  - DISTURBANCE IN ATTENTION [None]
  - AMNESIA [None]
